FAERS Safety Report 8063458-5 (Version None)
Quarter: 2012Q1

REPORT INFORMATION
  Report Type: 
  Country: None (occurrence: None)
  Receive Date: 20120123
  Receipt Date: 20120113
  Transmission Date: 20120608
  Serious: Yes (Other)
  Sender: FDA-Public Use
  Company Number: PHHY2011CA108621

PATIENT
  Sex: Female

DRUGS (6)
  1. GILENYA [Suspect]
     Indication: RELAPSING-REMITTING MULTIPLE SCLEROSIS
     Dosage: 0.5 MG, QD
     Route: 048
     Dates: start: 20110817, end: 20111213
  2. XALATAN [Concomitant]
     Dosage: UNK UKN, UNK
  3. ALPHAGAN [Concomitant]
     Dosage: UNK UKN, UNK
  4. NEVANAC [Concomitant]
     Dosage: UNK UKN, UNK
  5. COSOPT [Concomitant]
     Dosage: UNK UKN, UNK
  6. PREDNISOLONE [Concomitant]
     Dosage: UNK UKN, UNK

REACTIONS (4)
  - GLAUCOMA [None]
  - INTRAOCULAR PRESSURE INCREASED [None]
  - HERPES OPHTHALMIC [None]
  - EYE DISORDER [None]
